FAERS Safety Report 7293087-2 (Version None)
Quarter: 2011Q1

REPORT INFORMATION
  Report Type: 
  Country: None (occurrence: None)
  Receive Date: 20110215
  Receipt Date: 20110207
  Transmission Date: 20110831
  Serious: No
  Sender: FDA-Public Use
  Company Number: US-BAYER-2011-011799

PATIENT
  Age: 10 Year
  Sex: Male
  Weight: 30.385 kg

DRUGS (1)
  1. ALEVE (CAPLET) [Suspect]
     Dosage: UNK

REACTIONS (2)
  - NAUSEA [None]
  - FEELING JITTERY [None]
